FAERS Safety Report 8514917-X (Version None)
Quarter: 2012Q3

REPORT INFORMATION
  Report Type: 
  Country: None (occurrence: None)
  Receive Date: 20120717
  Receipt Date: 20120702
  Transmission Date: 20120928
  Serious: Yes (Life-Threatening)
  Sender: FDA-Public Use
  Company Number: SI-ROCHE-782273

PATIENT
  Age: 54 Year
  Sex: Male

DRUGS (1)
  1. MABTHERA [Suspect]
     Indication: MANTLE CELL LYMPHOMA
     Dosage: FREQUENCY: 2 CYCLES OF 4 WEEKS MONOTHERAPY AFTER AUTOLOGOUS TRANSPLANTATION
     Route: 042
     Dates: start: 20100401, end: 20100901

REACTIONS (4)
  - PROGRESSIVE MULTIFOCAL LEUKOENCEPHALOPATHY [None]
  - DEPRESSION [None]
  - HEADACHE [None]
  - SOMNOLENCE [None]
